FAERS Safety Report 7690994-3 (Version None)
Quarter: 2011Q3

REPORT INFORMATION
  Report Type: 
  Country: None (occurrence: None)
  Receive Date: 20110817
  Receipt Date: 20110817
  Transmission Date: 20111222
  Serious: Yes (Hospitalization)
  Sender: FDA-Public Use
  Company Number: None

PATIENT
  Age: 56 Year
  Sex: Male

DRUGS (2)
  1. HEPARIN [Suspect]
     Indication: THROMBOSIS PROPHYLAXIS
     Dosage: 5000 UNITS SQ
     Route: 058
     Dates: start: 20110324, end: 20110401
  2. HEPARIN [Suspect]
     Indication: THROMBOSIS PROPHYLAXIS
     Dosage: 5000 UNITS SQ
     Route: 058
     Dates: start: 20110309, end: 20110316

REACTIONS (2)
  - TREATMENT FAILURE [None]
  - DEEP VEIN THROMBOSIS [None]
